FAERS Safety Report 25939417 (Version 1)
Quarter: 2025Q4

REPORT INFORMATION
  Report Type: Spontaneous
  Country: US (occurrence: US)
  Receive Date: 20251020
  Receipt Date: 20251020
  Transmission Date: 20260118
  Serious: Yes (Other)
  Sender: SPECGX
  Company Number: US-SPECGX-T202501623

PATIENT
  Age: 72 Year
  Sex: Female

DRUGS (2)
  1. ACETAMINOPHEN\OXYCODONE HYDROCHLORIDE [Suspect]
     Active Substance: ACETAMINOPHEN\OXYCODONE HYDROCHLORIDE
     Indication: Intervertebral disc degeneration
     Dosage: 10/325 MG, (ONE TABLET EVERY SIX HOURS)
     Route: 065
  2. ZANAFLEX [Concomitant]
     Active Substance: TIZANIDINE HYDROCHLORIDE
     Indication: Product used for unknown indication
     Dosage: UNK
     Route: 065

REACTIONS (11)
  - Glaucoma [Unknown]
  - Sarcoidosis [Unknown]
  - Illness [Unknown]
  - Complex regional pain syndrome [Unknown]
  - Migraine [Unknown]
  - Musculoskeletal discomfort [Unknown]
  - Shoulder deformity [Unknown]
  - Swelling [Unknown]
  - Urticaria [Unknown]
  - Abdominal discomfort [Unknown]
  - Headache [Unknown]

NARRATIVE: CASE EVENT DATE: 20250901
